FAERS Safety Report 7809640-0 (Version None)
Quarter: 2011Q4

REPORT INFORMATION
  Report Type: 
  Country: None (occurrence: None)
  Receive Date: 20111012
  Receipt Date: 20111007
  Transmission Date: 20120403
  Serious: Yes (Other)
  Sender: FDA-Public Use
  Company Number: US-BRISTOL-MYERS SQUIBB COMPANY-16148322

PATIENT
  Age: 35 Year
  Sex: Female

DRUGS (1)
  1. KENALOG [Suspect]
     Route: 030

REACTIONS (1)
  - NECROSIS [None]
